FAERS Safety Report 6276210-8 (Version None)
Quarter: 2009Q3

REPORT INFORMATION
  Report Type: 
  Country: None (occurrence: None)
  Receive Date: 20090722
  Receipt Date: 20090714
  Transmission Date: 20100115
  Serious: Yes (Life-Threatening, Hospitalization)
  Sender: FDA-Public Use
  Company Number: US-BAYER-200911406NA

PATIENT
  Age: 40 Year
  Sex: Female
  Weight: 87 kg

DRUGS (17)
  1. ALEMTUZUMAB [Suspect]
     Indication: MULTIPLE SCLEROSIS
     Route: 042
     Dates: start: 20090112, end: 20090112
  2. ALEMTUZUMAB [Suspect]
     Route: 042
     Dates: start: 20090119, end: 20090121
  3. ALEMTUZUMAB [Suspect]
     Route: 042
     Dates: start: 20090128, end: 20090128
  4. VICODIN [Concomitant]
  5. FENTANYL-100 [Concomitant]
  6. SYNTHROID [Concomitant]
     Indication: HYPOTHYROIDISM
     Dosage: TOTAL DAILY DOSE: 0.05 MG
     Route: 048
     Dates: start: 19940101
  7. HYDROCHLOROTHIAZIDE [Concomitant]
     Indication: HYPERTENSION
     Route: 048
     Dates: start: 20060101
  8. WARFARIN SODIUM [Concomitant]
     Indication: PULMONARY EMBOLISM
     Route: 048
     Dates: start: 20020101, end: 20090105
  9. NAMENDA [Concomitant]
     Indication: MEMORY IMPAIRMENT
     Dosage: TOTAL DAILY DOSE: 20 MG
     Route: 048
     Dates: start: 20060101
  10. KLONOPIN [Concomitant]
     Indication: TREMOR
     Dosage: TOTAL DAILY DOSE: 1 MG
     Route: 048
     Dates: start: 20060101
  11. ACETAZOLAMIDE [Concomitant]
     Indication: MASS
     Dosage: TOTAL DAILY DOSE: 750 MG
     Route: 048
     Dates: start: 20070101
  12. BACLOFEN [Concomitant]
     Indication: MUSCLE SPASMS
     Dosage: TOTAL DAILY DOSE: 40 MG
     Route: 048
     Dates: start: 20060101
  13. CYMBALTA [Concomitant]
     Indication: DEPRESSION
     Dosage: TOTAL DAILY DOSE: 60 MG
     Route: 048
     Dates: start: 20050101
  14. ABILIFY [Concomitant]
     Indication: DEPRESSION
     Route: 048
     Dates: start: 20080701
  15. ALBUTEROL [Concomitant]
     Indication: ASTHMA
  16. TORADOL [Concomitant]
     Dates: start: 20090105, end: 20090105
  17. BENADRYL [Concomitant]
     Dates: start: 20090105, end: 20090105

REACTIONS (3)
  - HEADACHE [None]
  - HYSTERECTOMY [None]
  - SUICIDAL IDEATION [None]
